FAERS Safety Report 8179906-6 (Version None)
Quarter: 2012Q1

REPORT INFORMATION
  Report Type: 
  Country: None (occurrence: None)
  Receive Date: 20120302
  Receipt Date: 20120223
  Transmission Date: 20120608
  Serious: Yes (Hospitalization, Other)
  Sender: FDA-Public Use
  Company Number: JP-JNJFOC-20120202430

PATIENT
  Age: 4 Decade
  Sex: Male

DRUGS (4)
  1. RISPERDAL [Suspect]
     Indication: SCHIZOPHRENIA, CATATONIC TYPE
     Route: 048
     Dates: start: 20100125
  2. RISPERDAL [Suspect]
     Route: 048
     Dates: start: 20100220
  3. YOKUKAN-SAN [Concomitant]
     Indication: PSYCHIATRIC SYMPTOM
     Route: 048
  4. RISPERDAL [Suspect]
     Route: 048
     Dates: start: 20100622, end: 20100803

REACTIONS (1)
  - PAROXYSMAL PERCEPTUAL ALTERATION [None]
